FAERS Safety Report 16640708 (Version 1)
Quarter: 2019Q3

REPORT INFORMATION
  Report Type: Spontaneous
  Country: US (occurrence: US)
  Receive Date: 20190729
  Receipt Date: 20190729
  Transmission Date: 20191004
  Serious: Yes (Other)
  Sender: FDA-Public Use
  Company Number: US-STRIDES ARCOLAB LIMITED-2019SP000833

PATIENT
  Age: 76 Year
  Sex: Female

DRUGS (8)
  1. MYCOPHENOLATE MOFETIL. [Suspect]
     Active Substance: MYCOPHENOLATE MOFETIL
     Indication: RHEUMATOID ARTHRITIS
     Dosage: 1.5 G DAILY
     Route: 065
  2. PREDNISOLONE ACETATE. [Suspect]
     Active Substance: PREDNISOLONE ACETATE
     Indication: INTRAOCULAR LENS IMPLANT
     Dosage: ONE DROP FOUR TIMES DAILY
  3. POLYMYXIN/TRIMETHOPRIM [Concomitant]
     Active Substance: POLYMYXIN B SULFATE\TRIMETHOPRIM
     Indication: INTRAOCULAR LENS IMPLANT
     Dosage: 10000-0.1UNIT/ML
     Route: 061
  4. MYCOPHENOLATE MOFETIL. [Suspect]
     Active Substance: MYCOPHENOLATE MOFETIL
     Indication: BIRDSHOT CHORIORETINOPATHY
  5. HUMIRA [Suspect]
     Active Substance: ADALIMUMAB
     Indication: BIRDSHOT CHORIORETINOPATHY
  6. MOXIFLOXACIN. [Concomitant]
     Active Substance: MOXIFLOXACIN
     Indication: INTRAOCULAR LENS IMPLANT
     Dosage: 0.2ML OF 1MG/0.1ML, INTRACAMERALLY
     Route: 065
  7. NEPAFENAC [Concomitant]
     Active Substance: NEPAFENAC
     Indication: INTRAOCULAR LENS IMPLANT
     Dosage: 0.3 PERCENT DAILY
     Route: 065
  8. HUMIRA [Suspect]
     Active Substance: ADALIMUMAB
     Indication: RHEUMATOID ARTHRITIS
     Dosage: 40 MG EVERY TWO WEEKS
     Route: 065

REACTIONS (6)
  - Visual impairment [Recovered/Resolved]
  - Vitreous floaters [Recovered/Resolved]
  - Staphylococcal infection [Recovered/Resolved]
  - Off label use [Unknown]
  - Endophthalmitis [Recovered/Resolved]
  - Hypopyon [Recovered/Resolved]
